FAERS Safety Report 4265637-1 (Version None)
Quarter: 2004Q1

REPORT INFORMATION
  Report Type: 
  Country: None (occurrence: None)
  Receive Date: 20040106
  Receipt Date: 20031222
  Transmission Date: 20041129
  Serious: Yes (Hospitalization)
  Sender: FDA-Public Use
  Company Number: 701298

PATIENT
  Age: 45 Year
  Sex: Female

DRUGS (2)
  1. AMEVIVE [Suspect]
     Indication: PSORIASIS
     Dosage: 7.5 MG QW IV
     Route: 042
     Dates: start: 20031014, end: 20031103
  2. AMEVIVE [Suspect]
     Indication: PSORIASIS
     Dosage: 7.5 MG QW IV
     Route: 042
     Dates: start: 29931119

REACTIONS (3)
  - CATHETER RELATED INFECTION [None]
  - PNEUMONIA [None]
  - SEPSIS [None]
